FAERS Safety Report 8320126-X (Version None)
Quarter: 2012Q2

REPORT INFORMATION
  Report Type: 
  Country: None (occurrence: None)
  Receive Date: 20120430
  Receipt Date: 20120425
  Transmission Date: 20120825
  Serious: Yes (Other)
  Sender: FDA-Public Use
  Company Number: US-AMGEN-USASP2011057115

PATIENT
  Age: 82 Year
  Sex: Female
  Weight: 64.4 kg

DRUGS (1)
  1. VECTIBIX [Suspect]
     Indication: COLORECTAL CANCER
     Dosage: 386 MG, ONE TIME DOSE
     Route: 042
     Dates: start: 20111020, end: 20111020

REACTIONS (6)
  - HYPOXIA [None]
  - AGITATION [None]
  - HYPERTENSION [None]
  - COUGH [None]
  - DYSPNOEA [None]
  - DRUG HYPERSENSITIVITY [None]
